FAERS Safety Report 23861591 (Version 1)
Quarter: 2024Q2

REPORT INFORMATION
  Report Type: Spontaneous
  Country: US (occurrence: US)
  Receive Date: 20240516
  Receipt Date: 20240516
  Transmission Date: 20240716
  Serious: No
  Sender: FDA-Public Use
  Company Number: US-Nobelpharma America, LLC-NPA-2024-00767

PATIENT
  Sex: Female

DRUGS (6)
  1. HYFTOR [Suspect]
     Active Substance: SIROLIMUS
     Indication: Tuberous sclerosis complex
     Dosage: APPLY A THIN FILM TOPICALLY TO THE AFFECTED AREAS TWICE DAILY
     Route: 003
     Dates: start: 20240305
  2. EVEROLIMUS [Concomitant]
     Active Substance: EVEROLIMUS
  3. LORATADINE [Concomitant]
     Active Substance: LORATADINE
  4. OMEPRAZOLE [Concomitant]
     Active Substance: DONEPEZIL HYDROCHLORIDE\OMEPRAZOLE\OMEPRAZOLE MAGNESIUM
  5. ONDANSETRON [Concomitant]
     Active Substance: ONDANSETRON
  6. SIMETHICONE (DIMETHICONE) [Concomitant]
     Active Substance: DIMETHICONE

REACTIONS (1)
  - Alopecia [Unknown]
